FAERS Safety Report 5190963-1 (Version None)
Quarter: 2006Q4

REPORT INFORMATION
  Report Type: 
  Country: None (occurrence: None)
  Receive Date: 20061222
  Receipt Date: 20061214
  Transmission Date: 20070319
  Serious: Yes (Other)
  Sender: FDA-Public Use
  Company Number: DE-ABBOTT-06P-062-0353386-00

PATIENT
  Sex: Female

DRUGS (2)
  1. ERGENYL [Suspect]
     Indication: DRUG USE FOR UNKNOWN INDICATION
     Route: 065
     Dates: start: 19960101
  2. DOCETAXEL [Interacting]
     Indication: CHEMOTHERAPY
     Route: 042

REACTIONS (2)
  - DRUG INTERACTION [None]
  - PARTIAL SEIZURES [None]
